FAERS Safety Report 7232392-2 (Version None)
Quarter: 2011Q1

REPORT INFORMATION
  Report Type: 
  Country: None (occurrence: None)
  Receive Date: 20110105
  Receipt Date: 20101223
  Transmission Date: 20110831
  Serious: Yes (Hospitalization)
  Sender: FDA-Public Use
  Company Number: WAES 1004USA01449

PATIENT
  Age: 63 Year
  Sex: Female
  Weight: 92.9874 kg

DRUGS (20)
  1. BLINDED THERAPY UNK [Suspect]
     Indication: OSTEOARTHRITIS
     Dosage: IV
     Route: 042
     Dates: start: 20091119
  2. GINKGO [Concomitant]
  3. SYNTHROID [Concomitant]
  4. AMITRIPTYLINE HYDROCHLORIDE [Concomitant]
  5. ASCORBIC ACID [Concomitant]
  6. VITAMINS (UNSPECIFIED) [Concomitant]
  7. BUPROPION HYDROCHLORIDE [Concomitant]
  8. ZYRTEC [Concomitant]
  9. CHONDROITIN [Concomitant]
  10. METFORMIN [Concomitant]
  11. OSTEO-BI-FLEX [Concomitant]
  12. PAXIL [Concomitant]
  13. CALCIUM (UNSPECIFIED) [Concomitant]
  14. FLAXSEED [Concomitant]
  15. POTASSIUM GLUCONATE TAB [Concomitant]
  16. FOSAMAX [Suspect]
     Indication: OSTEOPOROSIS
     Dosage: 10 MG/DAILY/PO
     Route: 048
     Dates: start: 20020101, end: 20071224
  17. ZIAC [Concomitant]
  18. ASPIRIN [Concomitant]
  19. ACTONEL [Suspect]
     Indication: OSTEOPOROSIS
     Dosage: 150 MG/MTH/PO
     Route: 048
     Dates: start: 20080116, end: 20100205
  20. LORAZEPAM [Concomitant]

REACTIONS (5)
  - STRESS FRACTURE [None]
  - PATHOLOGICAL FRACTURE [None]
  - FEMUR FRACTURE [None]
  - FALL [None]
  - OSTEOMA [None]
